FAERS Safety Report 7530670-0 (Version None)
Quarter: 2011Q2

REPORT INFORMATION
  Report Type: 
  Country: None (occurrence: None)
  Receive Date: 20110607
  Receipt Date: 20110526
  Transmission Date: 20111010
  Serious: Yes (Other)
  Sender: FDA-Public Use
  Company Number: CA-BAYER-2011-045360

PATIENT
  Age: 40 Year
  Sex: Male
  Weight: 90 kg

DRUGS (1)
  1. AVELOX [Suspect]
     Dosage: 400 MG, QD

REACTIONS (9)
  - COORDINATION ABNORMAL [None]
  - FEELING ABNORMAL [None]
  - PARAESTHESIA [None]
  - COLD SWEAT [None]
  - ANXIETY [None]
  - DISTURBANCE IN ATTENTION [None]
  - DIZZINESS [None]
  - MENTAL IMPAIRMENT [None]
  - PALPITATIONS [None]
